FAERS Safety Report 6367655-6 (Version None)
Quarter: 2009Q3

REPORT INFORMATION
  Report Type: 
  Country: None (occurrence: None)
  Receive Date: 20090908
  Receipt Date: 20090422
  Transmission Date: 20100115
  Serious: Yes (Other)
  Sender: FDA-Public Use
  Company Number: PAR_02946_2009

PATIENT

DRUGS (1)
  1. MEGACE ES [Suspect]
     Indication: WEIGHT DECREASED
     Dosage: (ORAL)
     Route: 048
     Dates: start: 20090127, end: 20090327

REACTIONS (1)
  - DEEP VEIN THROMBOSIS [None]
